FAERS Safety Report 26074588 (Version 1)
Quarter: 2025Q4

REPORT INFORMATION
  Report Type: Spontaneous
  Country: US (occurrence: US)
  Receive Date: 20251121
  Receipt Date: 20251121
  Transmission Date: 20260117
  Serious: No
  Sender: ALEXION PHARMACEUTICALS
  Company Number: US-AstraZeneca-CH-00996530AP

PATIENT
  Sex: Female

DRUGS (1)
  1. SYMBICORT [Suspect]
     Active Substance: BUDESONIDE\FORMOTEROL FUMARATE DIHYDRATE
     Dosage: 80 UNK
     Route: 065

REACTIONS (8)
  - Device malfunction [Unknown]
  - Product dose omission issue [Unknown]
  - Disabled relative [Unknown]
  - Somnolence [Unknown]
  - Limb discomfort [Unknown]
  - Dyspnoea [Unknown]
  - No adverse event [Unknown]
  - Disease progression [Unknown]
